FAERS Safety Report 9041112 (Version 1)
Quarter: 2013Q1

REPORT INFORMATION
  Report Type: Spontaneous
  Country: US (occurrence: None)
  Receive Date: 20130124
  Receipt Date: 20130124
  Transmission Date: 20140127
  Serious: Yes (Other)
  Sender: FDA-Public Use
  Company Number: None

PATIENT
  Age: 54 Year
  Sex: Female
  Weight: 88.91 kg

DRUGS (1)
  1. DEXILANT [Suspect]
     Indication: GASTROOESOPHAGEAL REFLUX DISEASE
     Dosage: 60 MG. 1 TIME DAILY  MOUTH
     Route: 048
     Dates: start: 2009, end: 2012

REACTIONS (6)
  - Diarrhoea [None]
  - Vaginal prolapse [None]
  - Inflammatory bowel disease [None]
  - Faecal incontinence [None]
  - Headache [None]
  - Dehydration [None]
